FAERS Safety Report 5449269-5 (Version None)
Quarter: 2007Q3

REPORT INFORMATION
  Report Type: 
  Country: None (occurrence: None)
  Receive Date: 20070911
  Receipt Date: 20070831
  Transmission Date: 20080115
  Serious: Yes (Other)
  Sender: FDA-Public Use
  Company Number: US-PFIZER INC-2007038015

PATIENT
  Sex: Male
  Weight: 97.5 kg

DRUGS (1)
  1. VIAGRA [Suspect]
     Indication: ERECTILE DYSFUNCTION
     Route: 048

REACTIONS (3)
  - BLINDNESS [None]
  - OPTIC ISCHAEMIC NEUROPATHY [None]
  - VISUAL FIELD DEFECT [None]
